FAERS Safety Report 19958591 (Version 1)
Quarter: 2021Q4

REPORT INFORMATION
  Report Type: Spontaneous
  Country: US (occurrence: US)
  Receive Date: 20211015
  Receipt Date: 20211015
  Transmission Date: 20220303
  Serious: No
  Sender: FDA-Public Use
  Company Number: US-PFIZER INC-202101211972

PATIENT
  Age: 48 Year
  Sex: Male

DRUGS (1)
  1. PRISTIQ EXTENDED-RELEASE [Suspect]
     Active Substance: DESVENLAFAXINE SUCCINATE
     Dosage: 150 MG

REACTIONS (4)
  - Asthma [Unknown]
  - Sleep disorder [Unknown]
  - Thinking abnormal [Unknown]
  - Intentional product misuse [Unknown]
